FAERS Safety Report 7279252-9 (Version None)
Quarter: 2011Q1

REPORT INFORMATION
  Report Type: 
  Country: None (occurrence: None)
  Receive Date: 20110207
  Receipt Date: 20110202
  Transmission Date: 20110831
  Serious: Yes (Other)
  Sender: FDA-Public Use
  Company Number: DE-PFIZER INC-2011024076

PATIENT
  Age: 83 Year
  Sex: Female

DRUGS (2)
  1. AMLODIPINE BESILATE [Suspect]
  2. BELOC-ZOK COMP [Suspect]

REACTIONS (7)
  - DRY SKIN [None]
  - CARDIOVASCULAR DISORDER [None]
  - ANAPHYLACTIC SHOCK [None]
  - HYPOTENSION [None]
  - CHILLS [None]
  - URTICARIA [None]
  - ASTHENIA [None]
